FAERS Safety Report 6150067-8 (Version None)
Quarter: 2009Q2

REPORT INFORMATION
  Report Type: 
  Country: None (occurrence: None)
  Receive Date: 20090407
  Receipt Date: 20090407
  Transmission Date: 20091009
  Serious: Yes (Other)
  Sender: FDA-Public Use
  Company Number: None

PATIENT
  Age: 52 Year
  Sex: Female
  Weight: 65.7716 kg

DRUGS (1)
  1. ZOLPIDEM [Suspect]
     Dosage: 10 MG HS

REACTIONS (3)
  - ABNORMAL DREAMS [None]
  - FEAR [None]
  - HALLUCINATION [None]
